FAERS Safety Report 11349419 (Version 1)
Quarter: 2015Q3

REPORT INFORMATION
  Report Type: Report from Study
  Country: US (occurrence: US)
  Receive Date: 20150807
  Receipt Date: 20150807
  Transmission Date: 20151125
  Serious: Yes (Other)
  Sender: FDA-Public Use
  Company Number: US-BEH-2015052773

PATIENT
  Age: 24 Year
  Sex: Female

DRUGS (5)
  1. NIMODIPINE. [Concomitant]
     Active Substance: NIMODIPINE
  2. ASPIRIN. [Concomitant]
     Active Substance: ASPIRIN
  3. CORTICOSTEROIDS [Concomitant]
     Active Substance: CORTICOSTEROID NOS
  4. IVIG [Suspect]
     Active Substance: HUMAN IMMUNOGLOBULIN G
     Indication: SUSAC^S SYNDROME
     Dosage: 5 EVERY OTHER DAY THAN [SIC] WEEKLY
  5. MYCOPHENOLATE MOFETIL. [Concomitant]
     Active Substance: MYCOPHENOLATE MOFETIL

REACTIONS (1)
  - Susac^s syndrome [Unknown]
